FAERS Safety Report 15363336 (Version 2)
Quarter: 2019Q3

REPORT INFORMATION
  Report Type: Spontaneous
  Country: JP (occurrence: JP)
  Receive Date: 20180907
  Receipt Date: 20190808
  Transmission Date: 20191004
  Serious: Yes (Other)
  Sender: FDA-Public Use
  Company Number: JP-SA-2018SA243621

PATIENT
  Age: 47 Year
  Sex: Male

DRUGS (8)
  1. BEVACIZUMAB. [Suspect]
     Active Substance: BEVACIZUMAB
     Indication: METASTASES TO LYMPH NODES
     Dosage: UNK UNK, QCY
  2. ELPLAT [Suspect]
     Active Substance: OXALIPLATIN
     Indication: METASTASES TO LYMPH NODES
     Dosage: UNK UNK, QCY
     Route: 041
  3. BEVACIZUMAB. [Suspect]
     Active Substance: BEVACIZUMAB
     Indication: RECTAL CANCER
  4. CALCIUM LEVOFOLINATE [Suspect]
     Active Substance: LEVOLEUCOVORIN CALCIUM
     Indication: METASTASES TO LYMPH NODES
     Dosage: UNK UNK, QCY
     Route: 041
  5. FLUOROURACIL. [Suspect]
     Active Substance: FLUOROURACIL
     Indication: RECTAL CANCER
  6. ELPLAT [Suspect]
     Active Substance: OXALIPLATIN
     Indication: RECTAL CANCER
  7. FLUOROURACIL. [Suspect]
     Active Substance: FLUOROURACIL
     Indication: METASTASES TO LYMPH NODES
     Dosage: UNK UNK, QCY
  8. CALCIUM LEVOFOLINATE [Suspect]
     Active Substance: LEVOLEUCOVORIN CALCIUM
     Indication: RECTAL CANCER

REACTIONS (1)
  - Anastomotic fistula [Recovering/Resolving]
